FAERS Safety Report 8539306-3 (Version None)
Quarter: 2012Q3

REPORT INFORMATION
  Report Type: 
  Country: None (occurrence: None)
  Receive Date: 20120726
  Receipt Date: 20110822
  Transmission Date: 20120928
  Serious: No
  Sender: FDA-Public Use
  Company Number: US-ASTRAZENECA-2011SE45209

PATIENT
  Age: 47 Year
  Sex: Female
  Weight: 119.3 kg

DRUGS (13)
  1. SEROQUEL [Suspect]
     Dosage: HALF IN THE AM AND THE OTHER HALF LATER IN THE DAY
     Route: 048
  2. SEROQUEL [Suspect]
     Dosage: HALF IN THE AM AND THE OTHER HALF LATER IN THE DAY
     Route: 048
  3. LASIX [Concomitant]
  4. SEROQUEL [Suspect]
     Indication: SLEEP DISORDER
     Route: 048
  5. SEROQUEL [Suspect]
     Route: 048
  6. SEROQUEL [Suspect]
     Indication: POST-TRAUMATIC STRESS DISORDER
     Route: 048
  7. SEROQUEL [Suspect]
     Dosage: HALF IN THE AM AND THE OTHER HALF LATER IN THE DAY
     Route: 048
  8. SEROQUEL [Suspect]
     Indication: ANXIETY
     Route: 048
  9. SEROQUEL [Suspect]
     Dosage: HALF IN THE AM AND THE OTHER HALF LATER IN THE DAY
     Route: 048
  10. VITAMIN D [Concomitant]
  11. NUVIGIL [Concomitant]
  12. SYNTHROID [Concomitant]
  13. PROPRANOLOL [Concomitant]

REACTIONS (7)
  - BASEDOW'S DISEASE [None]
  - MALAISE [None]
  - OFF LABEL USE [None]
  - ILL-DEFINED DISORDER [None]
  - RHEUMATOID ARTHRITIS [None]
  - AUTOIMMUNE DISORDER [None]
  - WRONG TECHNIQUE IN DRUG USAGE PROCESS [None]
